FAERS Safety Report 24357565 (Version 1)
Quarter: 2024Q3

REPORT INFORMATION
  Report Type: Spontaneous
  Country: CN (occurrence: CN)
  Receive Date: 20240924
  Receipt Date: 20240924
  Transmission Date: 20241016
  Serious: Yes (Other)
  Sender: PFIZER
  Company Number: CN-PFIZER INC-PV202400123649

PATIENT
  Age: 55 Year
  Sex: Female
  Weight: 46 kg

DRUGS (2)
  1. MEDROL [Suspect]
     Active Substance: METHYLPREDNISOLONE
     Indication: Rheumatoid arthritis
     Dosage: 4 MG, 1X/DAY
     Route: 048
     Dates: start: 20150813, end: 20230203
  2. METHYLPREDNISOLONE [Suspect]
     Active Substance: METHYLPREDNISOLONE
     Indication: Rheumatoid arthritis
     Dosage: 2 MG, 1X/DAY
     Route: 048
     Dates: start: 20240901, end: 20240920

REACTIONS (1)
  - Gastritis erosive [Recovering/Resolving]

NARRATIVE: CASE EVENT DATE: 20240518
